FAERS Safety Report 8819891 (Version 1)
Quarter: 2012Q4

REPORT INFORMATION
  Report Type: 
  Country: US (occurrence: US)
  Receive Date: 20121001
  Receipt Date: 20121001
  Transmission Date: 20130627
  Serious: Yes (Hospitalization)
  Sender: FDA-Public Use
  Company Number: US-B.I. PHARMACEUTICALS,INC./RIDGEFIELD-2012-BP-23338BP

PATIENT
  Age: 67 None
  Sex: Female
  Weight: 66 kg

DRUGS (11)
  1. CATAPRES TTS [Suspect]
     Indication: HYPERTENSION
     Dosage: 0.2 mg
     Route: 061
     Dates: start: 2010
  2. DOCUSATE SODIUM [Concomitant]
     Indication: CONSTIPATION
     Route: 048
  3. CALCITRIOL [Concomitant]
     Dosage: 0.25 mcg
     Route: 048
  4. OXCARBAZEPINE [Concomitant]
     Indication: BIPOLAR DISORDER
     Dosage: 450 mg
     Route: 048
  5. NIFEDIPINE [Concomitant]
     Indication: HYPERTENSION
     Dosage: 120 mg
     Route: 048
     Dates: start: 201201
  6. SODIUM BICARBONATE [Concomitant]
     Indication: RENAL FAILURE
     Dosage: 1300 mg
     Route: 048
  7. OMEGA 3 [Concomitant]
     Route: 048
  8. VALIUM [Concomitant]
     Indication: SLEEP DISORDER
     Dosage: 10 mg
     Route: 048
  9. LORATADINE [Concomitant]
     Dosage: 10 mg
     Route: 048
  10. VITAMIN D3 [Concomitant]
     Dosage: 2000 U
     Route: 048
  11. PRAVASTATIN [Concomitant]
     Indication: BLOOD CHOLESTEROL INCREASED
     Dosage: 40 mg
     Route: 048

REACTIONS (6)
  - Hypomania [Recovered/Resolved]
  - Anxiety [Recovered/Resolved]
  - Application site erythema [Not Recovered/Not Resolved]
  - Application site pruritus [Not Recovered/Not Resolved]
  - Dizziness [Recovered/Resolved]
  - Headache [Recovered/Resolved]
